FAERS Safety Report 18361564 (Version 2)
Quarter: 2020Q4

REPORT INFORMATION
  Report Type: Spontaneous
  Country: FI (occurrence: FI)
  Receive Date: 20201008
  Receipt Date: 20201012
  Transmission Date: 20210114
  Serious: Yes (Death, Other)
  Sender: FDA-Public Use
  Company Number: FI-PUMA BIOTECHNOLOGY, LTD.-2020FI005918

PATIENT
  Sex: Female

DRUGS (3)
  1. NERLYNX [Suspect]
     Active Substance: NERATINIB
     Indication: HER2 POSITIVE BREAST CANCER
     Dosage: 240 MG, DAILY (6 TABLETS/DAY)
     Route: 065
     Dates: start: 20200210, end: 20200624
  2. BUDESONIDE. [Concomitant]
     Active Substance: BUDESONIDE
     Indication: PROPHYLAXIS AGAINST DIARRHOEA
     Dosage: UNK, UNK
     Route: 065
  3. LOPERAMIDE [Concomitant]
     Active Substance: LOPERAMIDE
     Indication: PROPHYLAXIS AGAINST DIARRHOEA
     Dosage: UNK, UNK
     Route: 065

REACTIONS (3)
  - Pneumonia [Unknown]
  - Death [Fatal]
  - Disease progression [Fatal]

NARRATIVE: CASE EVENT DATE: 20200708
